FAERS Safety Report 5976245-6 (Version None)
Quarter: 2008Q4

REPORT INFORMATION
  Report Type: 
  Country: None (occurrence: None)
  Receive Date: 20081202
  Receipt Date: 20081120
  Transmission Date: 20090506
  Serious: Yes (Hospitalization)
  Sender: FDA-Public Use
  Company Number: NL-ROCHE-562688

PATIENT
  Sex: Male
  Weight: 56.8 kg

DRUGS (5)
  1. CAPECITABINE [Suspect]
     Indication: GASTRIC CANCER
     Route: 065
     Dates: start: 20080301
  2. CHEMOTHERAPY NOS [Suspect]
     Indication: DRUG USE FOR UNKNOWN INDICATION
     Route: 065
     Dates: start: 20080302, end: 20080428
  3. OMEPRAZOLE [Concomitant]
     Dosage: DOSE: 2 X 40 MG
  4. METOCLOPRAMIDE [Concomitant]
  5. MOVICOLON [Concomitant]

REACTIONS (6)
  - ABDOMINAL PAIN [None]
  - DIARRHOEA [None]
  - GASTROINTESTINAL MOTILITY DISORDER [None]
  - LYMPHORRHOEA [None]
  - NAUSEA [None]
  - VOMITING [None]
